FAERS Safety Report 9592919 (Version 2)
Quarter: 2013Q4

REPORT INFORMATION
  Report Type: Report from Study
  Country: HK (occurrence: HK)
  Receive Date: 20131004
  Receipt Date: 20131004
  Transmission Date: 20140711
  Serious: Yes (Hospitalization)
  Sender: FDA-Public Use
  Company Number: HK-B.I. PHARMACEUTICALS,INC./RIDGEFIELD-2013-CS-00336CS

PATIENT
  Age: 64 Year
  Sex: Female
  Weight: 50 kg

DRUGS (11)
  1. AFATINIB [Suspect]
     Indication: LUNG NEOPLASM MALIGNANT
     Dosage: 50 MG
     Route: 048
     Dates: start: 20130424, end: 20130427
  2. AFATINIB [Suspect]
     Dosage: 40 MG
     Route: 048
     Dates: start: 20130428
  3. AFATINIB [Suspect]
     Dosage: 40 MG
     Route: 048
     Dates: start: 20130516
  4. ENZYPLEX [Concomitant]
     Indication: ABDOMINAL DISCOMFORT
     Dosage: 1 TAB TDS
     Route: 048
     Dates: start: 20130424
  5. ENZYPLEX [Concomitant]
     Dosage: 1 TAB TDS
     Route: 048
     Dates: start: 20130515
  6. AMARYL [Concomitant]
     Indication: DIABETES MELLITUS
     Dosage: 2MG OM
     Route: 048
     Dates: start: 20130424
  7. MEFORMIN [Concomitant]
     Indication: DIABETES MELLITUS
     Dosage: 1500 MG
     Route: 048
     Dates: start: 20130424
  8. ADALAT RETARD [Concomitant]
     Indication: HYPERTENSION
     Dosage: 40 MG
     Route: 048
     Dates: start: 20130424
  9. SIMVASTATIN [Concomitant]
     Indication: HYPERLIPIDAEMIA
     Dosage: 10 MG
     Route: 048
     Dates: start: 20130424
  10. MAXOLON [Concomitant]
     Indication: ABDOMINAL DISCOMFORT
     Dosage: DOSE PER APPLICATION: 2MG OM DAILY DOSE: 2MG OM
     Route: 048
     Dates: start: 20130712
  11. DEXAMETHASONE [Concomitant]
     Indication: ABDOMINAL DISCOMFORT
     Dosage: DOSE PER APPLICATION: 2MG OM DAILY DOSE: 2MG OM
     Route: 048
     Dates: start: 20130524

REACTIONS (9)
  - Diarrhoea [Recovered/Resolved]
  - Diarrhoea [Recovered/Resolved]
  - Diarrhoea [Recovered/Resolved]
  - Vomiting [Recovered/Resolved]
  - Decreased appetite [Not Recovered/Not Resolved]
  - Vomiting [Recovered/Resolved]
  - Hyponatraemia [Recovered/Resolved]
  - Hypokalaemia [Recovered/Resolved]
  - Diarrhoea [Recovered/Resolved]
